FAERS Safety Report 5447549-0 (Version None)
Quarter: 2007Q3

REPORT INFORMATION
  Report Type: 
  Country: None (occurrence: None)
  Receive Date: 20070905
  Receipt Date: 20070905
  Transmission Date: 20080115
  Serious: No
  Sender: FDA-Public Use
  Company Number: None

PATIENT
  Age: 47 Year
  Sex: Female

DRUGS (4)
  1. DOXORUBICIN UNKNOWN UNKNOWN [Suspect]
     Dosage: 15.2 MG UNKNOWN UNK
  2. VINCRISTINE SULFATE [Concomitant]
  3. HYDROMORPHONE HCL [Concomitant]
  4. DEXAMETHASONE 0.5MG TAB [Concomitant]

REACTIONS (2)
  - RADIATION OESOPHAGITIS [None]
  - RECALL PHENOMENON [None]
